FAERS Safety Report 9254999 (Version 2)
Quarter: 2013Q2

REPORT INFORMATION
  Report Type: Spontaneous
  Country: IT (occurrence: IT)
  Receive Date: 20130425
  Receipt Date: 20130507
  Transmission Date: 20140414
  Serious: Yes (Other)
  Sender: FDA-Public Use
  Company Number: IT-PFIZER INC-2013126300

PATIENT
  Age: 79 Year
  Sex: Female

DRUGS (5)
  1. EFEXOR ER [Suspect]
     Indication: BIPOLAR I DISORDER
     Dosage: 150 MG, DAILY
     Route: 048
     Dates: start: 20130101, end: 20130316
  2. TRITTICO [Suspect]
     Indication: DEPRESSION
     Dosage: 15 GTT, DAILY
     Route: 048
     Dates: start: 20130101, end: 20130316
  3. REMERON [Suspect]
     Indication: BIPOLAR I DISORDER
     Dosage: 30 MG, DAILY
     Route: 048
     Dates: start: 20130101, end: 20130316
  4. CARDIOASPIRIN [Concomitant]
     Dosage: UNK
     Route: 048
  5. XANAX [Concomitant]
     Dosage: UNK
     Route: 048

REACTIONS (2)
  - Petit mal epilepsy [Recovering/Resolving]
  - Off label use [Recovered/Resolved]
